FAERS Safety Report 13343135 (Version 2)
Quarter: 2018Q4

REPORT INFORMATION
  Report Type: Report from Study
  Country: FR (occurrence: FR)
  Receive Date: 20170316
  Receipt Date: 20181026
  Transmission Date: 20190204
  Serious: Yes (Other)
  Sender: FDA-Public Use
  Company Number: FR-PFIZER INC-2017111349

PATIENT
  Age: 34 Year
  Sex: Female
  Weight: 69 kg

DRUGS (4)
  1. CYTOTEC [Suspect]
     Active Substance: MISOPROSTOL
     Indication: ABORTION INDUCED
     Dosage: 400 UG, (1 TABLET AT 7:50 AM, 1 TABLET AT 10:00 AM)
     Route: 060
     Dates: start: 20111024, end: 20111024
  2. CYTOTEC [Suspect]
     Active Substance: MISOPROSTOL
     Dosage: 200 UG, 4X/DAY
  3. VENOFER [Concomitant]
     Active Substance: IRON SUCROSE
     Dosage: UNK
  4. MIFEGYNE [Suspect]
     Active Substance: MIFEPRISTONE
     Indication: ABORTION INDUCED
     Dosage: 600 MG, 1X/DAY
     Route: 048
     Dates: start: 20111021, end: 20111021

REACTIONS (4)
  - Drug ineffective for unapproved indication [Unknown]
  - Presyncope [Unknown]
  - Pain [Unknown]
  - Vaginal haemorrhage [Unknown]

NARRATIVE: CASE EVENT DATE: 20111110
